FAERS Safety Report 6840653-1 (Version None)
Quarter: 2010Q3

REPORT INFORMATION
  Report Type: 
  Country: None (occurrence: None)
  Receive Date: 20100713
  Receipt Date: 20100713
  Transmission Date: 20110219
  Serious: Yes (Hospitalization, Disabling, Other)
  Sender: FDA-Public Use
  Company Number: None

PATIENT
  Age: 14 Year
  Sex: Male
  Weight: 136.0791 kg

DRUGS (3)
  1. RISPERIDONE [Suspect]
     Indication: AUTISM
     Dosage: PO
     Route: 048
     Dates: start: 20010801, end: 20020501
  2. RISPERIDONE [Suspect]
     Indication: FRUSTRATION
     Dosage: PO
     Route: 048
     Dates: start: 20010801, end: 20020501
  3. RISPERIDONE [Suspect]
     Indication: IRRITABILITY
     Dosage: PO
     Route: 048
     Dates: start: 20010801, end: 20020501

REACTIONS (4)
  - GRAND MAL CONVULSION [None]
  - PITUITARY TUMOUR [None]
  - PRECOCIOUS PUBERTY [None]
  - WEIGHT INCREASED [None]
